FAERS Safety Report 12367184 (Version 2)
Quarter: 2016Q2

REPORT INFORMATION
  Report Type: Report from Study
  Country: GB (occurrence: GB)
  Receive Date: 20160513
  Receipt Date: 20160525
  Transmission Date: 20160815
  Serious: Yes (Life-Threatening, Hospitalization, Other)
  Sender: FDA-Public Use
  Company Number: GB-TEVA-658768ACC

PATIENT
  Age: 58 Year
  Sex: Male
  Weight: 74 kg

DRUGS (1)
  1. COPAXONE [Suspect]
     Active Substance: GLATIRAMER ACETATE
     Indication: MULTIPLE SCLEROSIS
     Dosage: 20 MILLIGRAM/MILLILITERS DAILY;
     Route: 058
     Dates: start: 20041012

REACTIONS (1)
  - Supraventricular tachyarrhythmia [Recovering/Resolving]

NARRATIVE: CASE EVENT DATE: 20160412
